FAERS Safety Report 9286419 (Version 2)
Quarter: 2013Q2

REPORT INFORMATION
  Report Type: Spontaneous
  Country: US (occurrence: US)
  Receive Date: 20130513
  Receipt Date: 20130619
  Transmission Date: 20140414
  Serious: Yes (Death, Other)
  Sender: FDA-Public Use
  Company Number: US-JNJFOC-20130504086

PATIENT
  Sex: Female
  Weight: 113.4 kg

DRUGS (4)
  1. REMICADE [Suspect]
     Indication: COLITIS ULCERATIVE
     Dosage: START DATE: APPROXIMATELY 5 TO 6 YEARS PRIOR TO THE DATE OF REPORT
     Route: 042
  2. REMICADE [Suspect]
     Indication: CROHN^S DISEASE
     Dosage: START DATE: APPROXIMATELY 5 TO 6 YEARS PRIOR TO THE DATE OF REPORT
     Route: 042
  3. CYCLOSPORINE [Concomitant]
     Route: 065
  4. PENTASA [Concomitant]
     Route: 065

REACTIONS (3)
  - Neoplasm malignant [Fatal]
  - Pneumonia [Not Recovered/Not Resolved]
  - Chronic obstructive pulmonary disease [Not Recovered/Not Resolved]
